FAERS Safety Report 18962608 (Version 1)
Quarter: 2021Q1

REPORT INFORMATION
  Report Type: Spontaneous
  Country: CA (occurrence: CA)
  Receive Date: 20210303
  Receipt Date: 20210303
  Transmission Date: 20210420
  Serious: Yes (Hospitalization, Other)
  Sender: FDA-Public Use
  Company Number: CA-GLAXOSMITHKLINE-CA2021GSK054643

PATIENT
  Age: 17 Year
  Sex: Female

DRUGS (3)
  1. QUETIAPINE. [Suspect]
     Active Substance: QUETIAPINE
     Indication: DEPRESSION
     Dosage: UNK
     Route: 048
  2. BUPROPION. [Suspect]
     Active Substance: BUPROPION
     Indication: DEPRESSION
     Dosage: UNK
     Route: 065
  3. ESCITALOPRAM [Suspect]
     Active Substance: ESCITALOPRAM OXALATE
     Indication: DEPRESSION
     Dosage: UNK
     Route: 065

REACTIONS (6)
  - Seizure [Recovered/Resolved]
  - Sympathomimetic effect [Recovered/Resolved]
  - Arrhythmia [Recovered/Resolved]
  - Cardiogenic shock [Recovered/Resolved]
  - Toxicity to various agents [Recovered/Resolved]
  - Product use issue [Recovered/Resolved]
